FAERS Safety Report 10611034 (Version 2)
Quarter: 2015Q1

REPORT INFORMATION
  Report Type: Spontaneous
  Country: US (occurrence: US)
  Receive Date: 20141126
  Receipt Date: 20150311
  Transmission Date: 20150720
  Serious: Yes (Hospitalization)
  Sender: FDA-Public Use
  Company Number: US-MALLINCKRODT-T201403726

PATIENT
  Age: 17 Year
  Sex: Female

DRUGS (1)
  1. GABLOFEN [Suspect]
     Active Substance: BACLOFEN
     Indication: MUSCLE SPASTICITY
     Dosage: 116.0 MCG/DAY
     Route: 037

REACTIONS (3)
  - Device malfunction [Unknown]
  - Drug withdrawal syndrome [Unknown]
  - Clonus [Unknown]

NARRATIVE: CASE EVENT DATE: 20141007
